FAERS Safety Report 4283993-5 (Version None)
Quarter: 2004Q1

REPORT INFORMATION
  Report Type: 
  Country: None (occurrence: None)
  Receive Date: 20040130
  Receipt Date: 20040108
  Transmission Date: 20041129
  Serious: Yes (Hospitalization, Other)
  Sender: FDA-Public Use
  Company Number: US_030997368

PATIENT
  Age: 78 Year
  Sex: Male
  Weight: 83 kg

DRUGS (16)
  1. GEMCITABINE HYDROCHLORIDE-IV (GEMCITABINE) [Suspect]
     Indication: MESOTHELIOMA
     Dosage: 1250 MG/M2 OTHER
     Dates: start: 20030605
  2. PEMETREXED [Suspect]
     Indication: MESOTHELIOMA
     Dosage: 500 MG/M2 OTHER
     Dates: start: 20030605
  3. PROTONIX [Concomitant]
  4. CARDIZEM CD [Concomitant]
  5. FOLIC ACID [Concomitant]
  6. VITAMIN B-12 [Concomitant]
  7. SYNTHROID [Concomitant]
  8. DIBENZYLINE [Concomitant]
  9. DELSYM [Concomitant]
  10. DECADRON [Concomitant]
  11. COUMADIN [Concomitant]
  12. FLONASE [Concomitant]
  13. MAXAIR [Concomitant]
  14. TESSALON PERLES (BENZONATATE) [Concomitant]
  15. LASIX [Concomitant]
  16. ALDACTONE [Concomitant]

REACTIONS (7)
  - DEEP VEIN THROMBOSIS [None]
  - INTERNATIONAL NORMALISED RATIO DECREASED [None]
  - INTERNATIONAL NORMALISED RATIO INCREASED [None]
  - OEDEMA PERIPHERAL [None]
  - PULMONARY EMBOLISM [None]
  - PYREXIA [None]
  - TOXIC EPIDERMAL NECROLYSIS [None]
